FAERS Safety Report 8242540-3 (Version None)
Quarter: 2012Q1

REPORT INFORMATION
  Report Type: 
  Country: None (occurrence: None)
  Receive Date: 20120329
  Receipt Date: 20120319
  Transmission Date: 20120608
  Serious: Yes (Other)
  Sender: FDA-Public Use
  Company Number: PHEH2012US006332

PATIENT
  Sex: Female

DRUGS (1)
  1. GLEEVEC [Suspect]
     Indication: GASTROINTESTINAL CARCINOMA
     Dosage: 400 MG, QD
     Route: 048
     Dates: start: 20110503

REACTIONS (4)
  - WEIGHT DECREASED [None]
  - ASTHENIA [None]
  - EYE HAEMORRHAGE [None]
  - VOMITING [None]
